FAERS Safety Report 6997221-0 (Version None)
Quarter: 2010Q3

REPORT INFORMATION
  Report Type: 
  Country: None (occurrence: None)
  Receive Date: 20100918
  Receipt Date: 20090914
  Transmission Date: 20110219
  Serious: No
  Sender: FDA-Public Use
  Company Number: US-WYE-H11202409

PATIENT
  Sex: Female

DRUGS (3)
  1. DESVENLAFAXINE SUCCINATE MONOHYDRATE [Suspect]
     Dosage: UNSPECIFIED
  2. ALLEGRA [Concomitant]
  3. LUNESTA [Suspect]
     Route: 048
     Dates: start: 20060101

REACTIONS (1)
  - ABNORMAL DREAMS [None]
